FAERS Safety Report 25943700 (Version 1)
Quarter: 2025Q4

REPORT INFORMATION
  Report Type: Spontaneous
  Country: US (occurrence: US)
  Receive Date: 20251021
  Receipt Date: 20251021
  Transmission Date: 20260117
  Serious: No
  Sender: GE HEALTHCARE
  Company Number: US-GE HEALTHCARE-2025CSU014216

PATIENT
  Age: 63 Year
  Sex: Male

DRUGS (2)
  1. OMNIPAQUE [Suspect]
     Active Substance: IOHEXOL
     Indication: Computerised tomogram head
     Dosage: 120 ML, TOTAL
     Route: 042
     Dates: start: 20251013
  2. OMNIPAQUE [Suspect]
     Active Substance: IOHEXOL
     Indication: Arteriogram carotid

REACTIONS (1)
  - Contrast media allergy [Recovering/Resolving]

NARRATIVE: CASE EVENT DATE: 20251013
